FAERS Safety Report 20931999 (Version 1)
Quarter: 2022Q2

REPORT INFORMATION
  Report Type: Report from Study
  Country: US (occurrence: US)
  Receive Date: 20220608
  Receipt Date: 20220608
  Transmission Date: 20220721
  Serious: No
  Sender: FDA-Public Use
  Company Number: US-NOVARTISTESTPH-NVSC2022US130905

PATIENT
  Sex: Male

DRUGS (2)
  1. RYDAPT [Suspect]
     Active Substance: MIDOSTAURIN
     Indication: Product used for unknown indication
     Dosage: 3 DOSAGE FORM, BID, (25MG CAP X 56)
     Route: 048
     Dates: start: 20201202, end: 20220303
  2. RYDAPT [Suspect]
     Active Substance: MIDOSTAURIN
     Dosage: UNK, (25MG CAP X 112)
     Route: 065

REACTIONS (1)
  - Illness [Unknown]
